FAERS Safety Report 6662171-6 (Version None)
Quarter: 2010Q1

REPORT INFORMATION
  Report Type: 
  Country: None (occurrence: None)
  Receive Date: 20100331
  Receipt Date: 20100315
  Transmission Date: 20100710
  Serious: Yes (Hospitalization)
  Sender: FDA-Public Use
  Company Number: NL-MEDIMMUNE-MEDI-0010891

PATIENT
  Sex: Male

DRUGS (1)
  1. SYNAGIS [Suspect]
     Route: 030
     Dates: start: 20091017, end: 20100303

REACTIONS (3)
  - DYSPNOEA [None]
  - NASOPHARYNGITIS [None]
  - OXYGEN SATURATION DECREASED [None]
